FAERS Safety Report 20340744 (Version 1)
Quarter: 2022Q1

REPORT INFORMATION
  Report Type: Spontaneous
  Country: US (occurrence: US)
  Receive Date: 20220117
  Receipt Date: 20220117
  Transmission Date: 20220423
  Serious: Yes (Other)
  Sender: FDA-Public Use
  Company Number: US-PFIZER INC-202200021540

PATIENT
  Age: 47 Year
  Sex: Female

DRUGS (12)
  1. XELJANZ [Suspect]
     Active Substance: TOFACITINIB CITRATE
     Dosage: 5 MG, DAILY
     Route: 048
     Dates: start: 20200101
  2. CELEBREX [Concomitant]
     Active Substance: CELECOXIB
     Dosage: UNK
  3. TRAMADOL [Concomitant]
     Active Substance: TRAMADOL
     Dosage: UNK
  4. FOLIC ACID [Concomitant]
     Active Substance: FOLIC ACID
     Dosage: UNK
  5. AMITRIPTYLINE [Concomitant]
     Active Substance: AMITRIPTYLINE
     Dosage: UNK
  6. MINOXIDIL [Concomitant]
     Active Substance: MINOXIDIL
     Dosage: UNK
  7. GABAPENTIN [Concomitant]
     Active Substance: GABAPENTIN
     Dosage: UNK
  8. OMEPRAZOLE [Concomitant]
     Active Substance: OMEPRAZOLE
     Dosage: UNK
  9. TOZINAMERAN [Concomitant]
     Active Substance: TOZINAMERAN
     Dosage: UNK
  10. METHOTREXATE [Concomitant]
     Active Substance: METHOTREXATE
     Dosage: UNK
  11. DULOXETINE [Concomitant]
     Active Substance: DULOXETINE
     Dosage: UNK
  12. FLUCELVAX QUADRIVALENT [Concomitant]
     Dosage: UNK

REACTIONS (2)
  - Condition aggravated [Not Recovered/Not Resolved]
  - Limb operation [Unknown]
